FAERS Safety Report 16858800 (Version 4)
Quarter: 2025Q3

REPORT INFORMATION
  Report Type: Spontaneous
  Country: EU (occurrence: EU)
  Receive Date: 20190926
  Receipt Date: 20250714
  Transmission Date: 20251021
  Serious: Yes (Death, Hospitalization)
  Sender: NOVARTIS
  Company Number: PHHY2019DE221422

PATIENT
  Age: 67 Year
  Sex: Female
  Weight: 84 kg

DRUGS (8)
  1. ZOMETA [Suspect]
     Active Substance: ZOLEDRONIC ACID
     Indication: Breast cancer metastatic
     Route: 042
     Dates: start: 2008, end: 201008
  2. ZOMETA [Suspect]
     Active Substance: ZOLEDRONIC ACID
     Dosage: 4 MG, Q3W
     Route: 065
     Dates: start: 20100827, end: 20101008
  3. ZOMETA [Suspect]
     Active Substance: ZOLEDRONIC ACID
     Dosage: 4 MG, Q3W
     Route: 042
     Dates: start: 20101116, end: 20110105
  4. DOCETAXEL [Suspect]
     Active Substance: DOCETAXEL
     Indication: Breast cancer metastatic
     Dosage: 100 MG/KG, Q3W
     Route: 042
     Dates: start: 20100827, end: 20101008
  5. DOCETAXEL [Suspect]
     Active Substance: DOCETAXEL
     Dosage: 225 MG/KG, Q3W (DOSE REDUCED, 75% FROM ORIGINAL DOSE)
     Route: 042
     Dates: start: 20101116, end: 20110105
  6. BEVACIZUMAB [Suspect]
     Active Substance: BEVACIZUMAB
     Indication: Breast cancer metastatic
     Dosage: 15 MG/KG, Q3W
     Route: 042
     Dates: start: 20100827, end: 20110105
  7. BEVACIZUMAB [Suspect]
     Active Substance: BEVACIZUMAB
     Dosage: 15 MG/KG, Q3W (DOSE REDUCED TO 75% OF ORIGINAL DOSE)
     Route: 042
     Dates: start: 20101116, end: 20110105
  8. AVASTIN [Suspect]
     Active Substance: BEVACIZUMAB
     Indication: Breast cancer metastatic
     Dosage: 15 MG/KG, Q3W
     Route: 065
     Dates: start: 20100827, end: 20101008

REACTIONS (6)
  - Gallbladder rupture [Fatal]
  - Septic shock [Fatal]
  - Acute cholecystitis necrotic [Fatal]
  - Cholelithiasis [Recovered/Resolved]
  - General physical health deterioration [Not Recovered/Not Resolved]
  - Cholecystitis [Recovering/Resolving]

NARRATIVE: CASE EVENT DATE: 20101101
